FAERS Safety Report 8461693-5 (Version None)
Quarter: 2012Q2

REPORT INFORMATION
  Report Type: 
  Country: None (occurrence: None)
  Receive Date: 20120625
  Receipt Date: 20120614
  Transmission Date: 20120825
  Serious: Yes (Other)
  Sender: FDA-Public Use
  Company Number: CA-JNJFOC-20120607800

PATIENT
  Sex: Male
  Weight: 84 kg

DRUGS (2)
  1. REMICADE [Suspect]
     Indication: COLITIS ULCERATIVE
     Dosage: 14TH TREATMENT
     Route: 042
     Dates: start: 20120614
  2. REMICADE [Suspect]
     Route: 042

REACTIONS (6)
  - OXYGEN SATURATION DECREASED [None]
  - INFUSION RELATED REACTION [None]
  - DYSPNOEA [None]
  - ANXIETY [None]
  - MALAISE [None]
  - DIZZINESS [None]
